FAERS Safety Report 7119255-8 (Version None)
Quarter: 2010Q4

REPORT INFORMATION
  Report Type: 
  Country: None (occurrence: None)
  Receive Date: 20101023
  Receipt Date: 20100903
  Transmission Date: 20110411
  Serious: Yes (Other)
  Sender: FDA-Public Use
  Company Number: WWISSUE-491

PATIENT
  Sex: Female

DRUGS (1)
  1. DIGOXIN [Suspect]
     Dates: start: 20100801, end: 20100903

REACTIONS (2)
  - CARDIOACTIVE DRUG LEVEL DECREASED [None]
  - PRODUCT SUBSTITUTION ISSUE [None]
